FAERS Safety Report 8111317-1 (Version None)
Quarter: 2012Q1

REPORT INFORMATION
  Report Type: 
  Country: None (occurrence: None)
  Receive Date: 20120203
  Receipt Date: 20110829
  Transmission Date: 20120608
  Serious: Yes (Life-Threatening)
  Sender: FDA-Public Use
  Company Number: US-GLAXOSMITHKLINE-A0942718A

PATIENT
  Age: 59 Year
  Sex: Female

DRUGS (5)
  1. POLYPHARMACY [Concomitant]
     Dates: start: 19890101
  2. LAMOTRIGINE [Suspect]
     Indication: AFFECTIVE DISORDER
     Dosage: 50MG PER DAY
     Route: 048
     Dates: start: 20110701
  3. CLONAZEPAM [Concomitant]
  4. HYDROCODONE BITARTRATE [Concomitant]
  5. XANAX [Concomitant]

REACTIONS (2)
  - SOMNOLENCE [None]
  - SUICIDAL IDEATION [None]
